FAERS Safety Report 5250444-3 (Version None)
Quarter: 2007Q1

REPORT INFORMATION
  Report Type: 
  Country: None (occurrence: None)
  Receive Date: 20070228
  Receipt Date: 20060417
  Transmission Date: 20070707
  Serious: No
  Sender: FDA-Public Use
  Company Number: US-GLAXOSMITHKLINE-A0601962A

PATIENT
  Age: 37 Year
  Sex: Female

DRUGS (7)
  1. LAMICTAL [Suspect]
     Indication: BIPOLAR DISORDER
     Dosage: 200MG PER DAY
     Route: 048
     Dates: start: 20051101
  2. ATENOLOL [Concomitant]
  3. WELLBUTRIN [Concomitant]
  4. RANITIDINE [Concomitant]
  5. LITHIUM CARBONATE [Concomitant]
  6. SYNTHROID [Concomitant]
  7. AMITRIPTYLINE HCL [Concomitant]

REACTIONS (5)
  - CARDIOVASCULAR DISORDER [None]
  - FEELING COLD [None]
  - INFLUENZA LIKE ILLNESS [None]
  - PERIPHERAL COLDNESS [None]
  - RASH [None]
